FAERS Safety Report 7950915-2 (Version None)
Quarter: 2011Q4

REPORT INFORMATION
  Report Type: 
  Country: None (occurrence: None)
  Receive Date: 20111201
  Receipt Date: 20111121
  Transmission Date: 20120403
  Serious: No
  Sender: FDA-Public Use
  Company Number: US-BIOGENIDEC-2011BI035799

PATIENT
  Sex: Female

DRUGS (2)
  1. AVONEX [Concomitant]
     Indication: MULTIPLE SCLEROSIS
     Route: 030
  2. TYSABRI [Suspect]
     Indication: MULTIPLE SCLEROSIS
     Route: 042
     Dates: start: 20090616, end: 20110815

REACTIONS (6)
  - VAGINAL INFECTION [None]
  - EYE DISORDER [None]
  - DEPRESSION [None]
  - COGNITIVE DISORDER [None]
  - MEMORY IMPAIRMENT [None]
  - DYSARTHRIA [None]
